FAERS Safety Report 10016752 (Version 1)
Quarter: 2014Q1

REPORT INFORMATION
  Report Type: Spontaneous
  Country: GB (occurrence: GB)
  Receive Date: 20140318
  Receipt Date: 20140318
  Transmission Date: 20141002
  Serious: Yes (Other)
  Sender: FDA-Public Use
  Company Number: PHHY2014GB028341

PATIENT
  Age: 15 Year
  Sex: Male

DRUGS (1)
  1. FLUOXETINE HYDROCHLORIDE [Suspect]
     Indication: DEPRESSION
     Dosage: 10 MG, UNK
     Route: 048
     Dates: start: 20140207, end: 20140214

REACTIONS (7)
  - Hyperventilation [Recovered/Resolved]
  - Feeling abnormal [Recovered/Resolved]
  - Movement disorder [Recovered/Resolved]
  - Serotonin syndrome [Recovered/Resolved]
  - Tremor [Recovered/Resolved]
  - Dyskinesia [Recovered/Resolved]
  - Mydriasis [Recovered/Resolved]
